FAERS Safety Report 19792407 (Version 1)
Quarter: 2021Q3

REPORT INFORMATION
  Report Type: Spontaneous
  Country: US (occurrence: US)
  Receive Date: 20210906
  Receipt Date: 20210906
  Transmission Date: 20211014
  Serious: Yes (Hospitalization, Other)
  Sender: FDA-Public Use
  Company Number: US-MICRO LABS LIMITED-ML2021-02135

PATIENT
  Age: 21 Year
  Sex: Female

DRUGS (4)
  1. DIPHENHYDRAMINE (ANDA 205723) [Suspect]
     Active Substance: DIPHENHYDRAMINE HYDROCHLORIDE
  2. FENTANYL. [Suspect]
     Active Substance: FENTANYL
  3. CODEINE [Suspect]
     Active Substance: CODEINE
  4. AMITRIPTYLINE HYDROCHLORIDE. [Suspect]
     Active Substance: AMITRIPTYLINE HYDROCHLORIDE

REACTIONS (4)
  - Intentional overdose [Unknown]
  - Anterograde amnesia [Unknown]
  - Substance abuse [Unknown]
  - Encephalopathy [Recovering/Resolving]
